FAERS Safety Report 15989572 (Version 1)
Quarter: 2019Q1

REPORT INFORMATION
  Report Type: Spontaneous
  Country: US (occurrence: US)
  Receive Date: 20190221
  Receipt Date: 20190221
  Transmission Date: 20190418
  Serious: No
  Sender: FDA-Public Use
  Company Number: US-PFIZER INC-2019074378

PATIENT
  Age: 70 Year
  Sex: Female
  Weight: 97.6 kg

DRUGS (1)
  1. IBRANCE [Suspect]
     Active Substance: PALBOCICLIB
     Indication: BREAST CANCER METASTATIC
     Dosage: UNK, CYCLIC (D1-21 Q28 DAYS)
     Route: 048
     Dates: start: 201612, end: 20180106

REACTIONS (2)
  - Diarrhoea [Unknown]
  - Neoplasm progression [Unknown]
